FAERS Safety Report 10250134 (Version 1)
Quarter: 2014Q2

REPORT INFORMATION
  Report Type: Spontaneous
  Country: US (occurrence: US)
  Receive Date: 20140620
  Receipt Date: 20140620
  Transmission Date: 20141212
  Serious: No
  Sender: FDA-Public Use
  Company Number: US-BRISTOL-MYERS SQUIBB COMPANY-20682787

PATIENT
  Age: 83 Year
  Sex: Female

DRUGS (3)
  1. ELIQUIS [Suspect]
     Indication: ATRIAL FIBRILLATION
  2. DILTIAZEM HCL [Concomitant]
  3. RANITIDINE [Concomitant]

REACTIONS (4)
  - Dyspepsia [Unknown]
  - Glossodynia [Unknown]
  - Incorrect dose administered [Unknown]
  - Dysphagia [Unknown]
